FAERS Safety Report 4646103-8 (Version None)
Quarter: 2005Q2

REPORT INFORMATION
  Report Type: 
  Country: None (occurrence: None)
  Receive Date: 20050427
  Receipt Date: 20050228
  Transmission Date: 20051028
  Serious: No
  Sender: FDA-Public Use
  Company Number: US-GLAXOSMITHKLINE-A0548220A

PATIENT
  Sex: Female

DRUGS (2)
  1. ZOFRAN [Suspect]
     Dosage: 32MG UNKNOWN
     Route: 042
  2. NO CONCURRENT MEDICATION [Concomitant]

REACTIONS (1)
  - MIGRAINE [None]
